FAERS Safety Report 21906157 (Version 4)
Quarter: 2024Q3

REPORT INFORMATION
  Report Type: Report from Study
  Country: US (occurrence: US)
  Receive Date: 20230124
  Receipt Date: 20240911
  Transmission Date: 20241016
  Serious: Yes (Other)
  Sender: TAKEDA
  Company Number: US-TAKEDA-US201805710

PATIENT
  Age: 67 Year
  Sex: Female

DRUGS (5)
  1. HUMAN IMMUNOGLOBULIN G [Suspect]
     Active Substance: HUMAN IMMUNOGLOBULIN G
     Indication: Primary immunodeficiency syndrome
     Dosage: UNK
     Route: 042
  2. HUMAN IMMUNOGLOBULIN G [Suspect]
     Active Substance: HUMAN IMMUNOGLOBULIN G
     Indication: Immunodeficiency common variable
  3. HYQVIA [Suspect]
     Active Substance: HUMAN IMMUNOGLOBULIN G\HYALURONIDASE (HUMAN RECOMBINANT)
     Indication: Primary immunodeficiency syndrome
     Dosage: 80 GRAM, Q3WEEKS
     Route: 065
  4. CUVITRU [Suspect]
     Active Substance: HUMAN IMMUNOGLOBULIN G
     Indication: Immunodeficiency common variable
     Dosage: 7 GRAM, 1/WEEK
     Route: 065
  5. CUVITRU [Suspect]
     Active Substance: HUMAN IMMUNOGLOBULIN G
     Indication: Primary immunodeficiency syndrome
     Dosage: UNK
     Route: 058

REACTIONS (12)
  - Pneumonia [Unknown]
  - Headache [Unknown]
  - Respiratory syncytial virus infection [Unknown]
  - Bronchitis [Unknown]
  - Animal scratch [Unknown]
  - Inappropriate schedule of product administration [Unknown]
  - Haematoma [Unknown]
  - Abdominal distension [Unknown]
  - Fatigue [Unknown]
  - Arthralgia [Unknown]
  - Fall [Unknown]
  - Vertigo [Unknown]

NARRATIVE: CASE EVENT DATE: 20230123
